FAERS Safety Report 25950643 (Version 1)
Quarter: 2025Q4

REPORT INFORMATION
  Report Type: Spontaneous
  Country: JP (occurrence: JP)
  Receive Date: 20251023
  Receipt Date: 20251023
  Transmission Date: 20260118
  Serious: Yes (Other)
  Sender: MERCK SHARP & DOHME LLC
  Company Number: JP-009507513-2341905

PATIENT
  Age: 45 Year
  Sex: Female

DRUGS (1)
  1. KEYTRUDA [Suspect]
     Active Substance: PEMBROLIZUMAB
     Indication: Genital neoplasm malignant female
     Dosage: TIME INTERVAL: CYCLICAL

REACTIONS (4)
  - Haematotoxicity [Unknown]
  - Gamma-glutamyltransferase abnormal [Unknown]
  - Diarrhoea [Unknown]
  - Blood creatinine abnormal [Unknown]
